FAERS Safety Report 4809896-2 (Version None)
Quarter: 2005Q4

REPORT INFORMATION
  Report Type: 
  Country: None (occurrence: None)
  Receive Date: 20051026
  Receipt Date: 20051018
  Transmission Date: 20060501
  Serious: Yes (Other)
  Sender: FDA-Public Use
  Company Number: GB-JNJFOC-20050103391

PATIENT
  Age: 60 Year
  Sex: Male

DRUGS (9)
  1. RISPERDAL [Suspect]
     Indication: SCHIZOPHRENIA
     Dosage: NOCTE
  2. BENZAFIBRATE [Concomitant]
  3. LITHIUM [Concomitant]
  4. PAROXETINE HCL [Concomitant]
  5. METFORMIN [Concomitant]
  6. GLICAZIDE [Concomitant]
  7. RANITIDINE [Concomitant]
  8. ENALAPRIL [Concomitant]
  9. AMLODOPINE [Concomitant]

REACTIONS (1)
  - PERICARDIAL EFFUSION [None]
